FAERS Safety Report 4724683-1 (Version None)
Quarter: 2005Q3

REPORT INFORMATION
  Report Type: 
  Country: None (occurrence: None)
  Receive Date: 20050719
  Receipt Date: 20050719
  Transmission Date: 20060218
  Serious: No
  Sender: FDA-Public Use
  Company Number: None

PATIENT
  Age: 9 Year
  Sex: Male
  Weight: 41.7309 kg

DRUGS (1)
  1. STRATTERA [Suspect]

REACTIONS (4)
  - BONE DENSITY DECREASED [None]
  - FALL [None]
  - INJURY [None]
  - WEIGHT DECREASED [None]
